FAERS Safety Report 7471813-7 (Version None)
Quarter: 2011Q2

REPORT INFORMATION
  Report Type: 
  Country: None (occurrence: None)
  Receive Date: 20110511
  Receipt Date: 20100511
  Transmission Date: 20111010
  Serious: No
  Sender: FDA-Public Use
  Company Number: A0860637A

PATIENT
  Age: 45 Year
  Sex: Female

DRUGS (2)
  1. XELODA [Suspect]
     Dates: start: 20100405, end: 20100408
  2. TYKERB [Suspect]
     Dosage: 2TAB PER DAY
     Route: 065
     Dates: start: 20100405, end: 20100408

REACTIONS (3)
  - NAUSEA [None]
  - ARTHRALGIA [None]
  - DIARRHOEA [None]
